FAERS Safety Report 10039175 (Version 1)
Quarter: 2014Q1

REPORT INFORMATION
  Report Type: Spontaneous
  Country: US (occurrence: None)
  Receive Date: 20140306
  Receipt Date: 20140306
  Transmission Date: 20141002
  Serious: Yes (Hospitalization)
  Sender: FDA-Public Use
  Company Number: 163-21880-13073278

PATIENT
  Age: 65 Year
  Sex: Male
  Weight: 82.1 kg

DRUGS (11)
  1. REVLIMID [Suspect]
     Indication: PLASMA CELL MYELOMA
     Dosage: 10 MG, 3 IN 1 WK, PO
     Route: 048
     Dates: start: 201209, end: 2013
  2. DEXAMETHASONE (DEXAMETHASONE) [Concomitant]
  3. IRON (IRON) [Concomitant]
  4. FUROSEMIDE (FUROSEMIDE) [Concomitant]
  5. HYDROCODONE (HYDROCODONE) [Concomitant]
  6. TOPROL [Concomitant]
  7. TRAZODONE (TRAZODONE) [Concomitant]
  8. WARFARIN (WARFARIN) [Concomitant]
  9. CETIRIZINE (CETIRIZINE) [Concomitant]
  10. LANSOPRAZOLE (LANSOPRAZOLE) [Concomitant]
  11. METAXALONE (METAXALONE) [Concomitant]

REACTIONS (2)
  - Anaemia [None]
  - Renal failure [None]
